FAERS Safety Report 14461084 (Version 1)
Quarter: 2018Q1

REPORT INFORMATION
  Report Type: Spontaneous
  Country: US (occurrence: US)
  Receive Date: 20180130
  Receipt Date: 20180130
  Transmission Date: 20180509
  Serious: Yes (Hospitalization)
  Sender: FDA-Public Use
  Company Number: US-BIOGEN-2009BI005401

PATIENT
  Age: 50 Year
  Sex: Female
  Weight: 97.61 kg

DRUGS (4)
  1. PNEUMONIA SHOT [Concomitant]
     Active Substance: PNEUMOCOCCAL VACCINE POLYVALENT
     Indication: INFECTION PROPHYLAXIS
     Route: 065
     Dates: start: 20090711, end: 20090711
  2. AVONEX [Suspect]
     Active Substance: INTERFERON BETA-1A
     Route: 030
  3. AVONEX [Suspect]
     Active Substance: INTERFERON BETA-1A
     Route: 030
     Dates: start: 2007
  4. AVONEX [Suspect]
     Active Substance: INTERFERON BETA-1A
     Indication: MULTIPLE SCLEROSIS
     Route: 030
     Dates: start: 1998, end: 2007

REACTIONS (13)
  - Staphylococcal infection [Recovered/Resolved]
  - Multiple sclerosis relapse [Recovered/Resolved]
  - Carpal tunnel syndrome [Not Recovered/Not Resolved]
  - Paraesthesia [Recovered/Resolved]
  - Muscle tightness [Not Recovered/Not Resolved]
  - Thyroid mass [Recovered/Resolved]
  - Influenza like illness [Recovered/Resolved]
  - Injection site infection [Recovered/Resolved]
  - Agraphia [Recovered/Resolved]
  - Scar [Not Recovered/Not Resolved]
  - Sjogren^s syndrome [Unknown]
  - Band sensation [Recovered/Resolved]
  - Feeling hot [Not Recovered/Not Resolved]

NARRATIVE: CASE EVENT DATE: 1999
